FAERS Safety Report 6425332-7 (Version None)
Quarter: 2009Q4

REPORT INFORMATION
  Report Type: 
  Country: None (occurrence: None)
  Receive Date: 20091102
  Receipt Date: 20091102
  Transmission Date: 20100525
  Serious: Yes (Other)
  Sender: FDA-Public Use
  Company Number: None

PATIENT
  Age: 59 Year
  Sex: Male
  Weight: 145 kg

DRUGS (1)
  1. PHYTONADIONE [Suspect]
     Indication: COAGULOPATHY
     Dosage: 10 MG ONCE IV
     Route: 042
     Dates: start: 20090411, end: 20090411

REACTIONS (2)
  - DIZZINESS [None]
  - DYSPNOEA [None]
